FAERS Safety Report 19978994 (Version 2)
Quarter: 2022Q1

REPORT INFORMATION
  Report Type: Spontaneous
  Country: US (occurrence: US)
  Receive Date: 20211020
  Receipt Date: 20220215
  Transmission Date: 20220423
  Serious: No
  Sender: FDA-Public Use
  Company Number: US-BRISTOL-MYERS SQUIBB COMPANY-BMS-2021-109135

PATIENT
  Sex: Female

DRUGS (2)
  1. OPDIVO [Suspect]
     Active Substance: NIVOLUMAB
     Indication: Uveal melanoma
     Dosage: OPDIVO 1MG/ KG YERVOY 3MG/KM
     Route: 042
     Dates: start: 2021
  2. YERVOY [Suspect]
     Active Substance: IPILIMUMAB
     Indication: Uveal melanoma
     Dosage: OPDIVO 1MG/ KG YERVOY 3MG/KM
     Route: 042
     Dates: start: 2021

REACTIONS (3)
  - Intentional product use issue [Unknown]
  - Liver function test increased [Unknown]
  - Rash [Unknown]

NARRATIVE: CASE EVENT DATE: 20210101
